FAERS Safety Report 21826901 (Version 1)
Quarter: 2023Q1

REPORT INFORMATION
  Report Type: Other
  Country: CN (occurrence: None)
  Receive Date: 20230106
  Receipt Date: 20230106
  Transmission Date: 20230418
  Serious: Yes (Hospitalization)
  Sender: FDA-Public Use
  Company Number: CN-ROCHE-3256119

PATIENT
  Age: 64 Year
  Sex: Female

DRUGS (6)
  1. TRASTUZUMAB [Suspect]
     Active Substance: TRASTUZUMAB
     Indication: Breast cancer
     Dosage: 400 MG D1, GIVEN FOR TWO CYCLES (3 WEEKS EACH), FOR FOUR CYCLES (3 WEEKS EACH).
     Route: 065
  2. PERTUZUMAB [Suspect]
     Active Substance: PERTUZUMAB
     Indication: Breast cancer
     Dosage: 840 MG D1, GIVEN FOR TWO CYCLES (3 WEEKS EACH), FOR FOUR CYCLES (3 WEEKS EACH).
     Route: 065
  3. DOCETAXEL [Suspect]
     Active Substance: DOCETAXEL
     Indication: Breast cancer
     Dosage: 108 MG D1, GIVEN FOR TWO CYCLES (3 WEEKS EACH)
     Route: 065
  4. DOCETAXEL [Suspect]
     Active Substance: DOCETAXEL
     Dosage: 100 MG D1 , FOR FOUR CYCLES (3 WEEKS EACH).
     Route: 065
  5. CARBOPLATIN [Suspect]
     Active Substance: CARBOPLATIN
     Indication: Breast cancer
     Dosage: 500 MG D1,GIVEN FOR TWO CYCLES (3 WEEKS EACH)
     Route: 065
  6. LETROZOLE [Concomitant]
     Active Substance: LETROZOLE
     Dosage: 2.5 MG/DAY FOR 5 YEARS

REACTIONS (11)
  - Atrial fibrillation [Unknown]
  - Atrioventricular block [Unknown]
  - Cardiac failure [Unknown]
  - Hypertrophic cardiomyopathy [Unknown]
  - Arteriosclerosis coronary artery [Unknown]
  - Hypertension [Unknown]
  - Type 2 diabetes mellitus [Unknown]
  - Metastases to lymph nodes [Unknown]
  - Chronic kidney disease [Unknown]
  - Disease progression [Unknown]
  - Drug ineffective [Unknown]
